FAERS Safety Report 9168251 (Version 2)
Quarter: 2013Q1

REPORT INFORMATION
  Report Type: Spontaneous
  Country: DE (occurrence: DE)
  Receive Date: 20130318
  Receipt Date: 20130322
  Transmission Date: 20140127
  Serious: Yes (Other)
  Sender: FDA-Public Use
  Company Number: PHHY2013DE024752

PATIENT
  Age: 63 Year
  Sex: Male

DRUGS (6)
  1. RASILEZ [Suspect]
     Indication: HYPERTENSION
     Dosage: 37.5 MG, QD
     Dates: start: 201302
  2. INSULIN [Concomitant]
     Dosage: UNK UKN, UNK
  3. SIMVASTATIN [Concomitant]
     Dosage: UNK UKN, UNK
  4. ASS [Concomitant]
     Dosage: UNK UKN, UNK
  5. PIRACETAM [Concomitant]
     Dosage: UNK UKN, UNK
  6. DIET [Concomitant]
     Dosage: UNK UKN, UNK

REACTIONS (5)
  - Blood glucose increased [Unknown]
  - Arthralgia [Unknown]
  - Back pain [Unknown]
  - Flatulence [Unknown]
  - Incorrect dose administered [Unknown]
